FAERS Safety Report 5768064-0 (Version None)
Quarter: 2008Q2

REPORT INFORMATION
  Report Type: 
  Country: None (occurrence: None)
  Receive Date: 20080612
  Receipt Date: 20080604
  Transmission Date: 20081010
  Serious: Yes (Death)
  Sender: FDA-Public Use
  Company Number: BE-ABBOTT-08P-013-0455569-00

PATIENT
  Sex: Male

DRUGS (3)
  1. LUCRIN DEPOT 11.25 MG [Suspect]
     Indication: PROSTATE CANCER
     Dates: start: 20060801
  2. ESTRAMUSTINE PHOSPHATE SODIUM [Concomitant]
     Indication: DRUG USE FOR UNKNOWN INDICATION
     Dates: start: 20071119
  3. BICALUTAMIDE [Concomitant]
     Indication: DRUG USE FOR UNKNOWN INDICATION
     Dates: start: 20060803

REACTIONS (4)
  - METASTASES TO BONE [None]
  - METASTASES TO LYMPH NODES [None]
  - METASTASIS [None]
  - METASTATIC NEOPLASM [None]
